FAERS Safety Report 15367700 (Version 4)
Quarter: 2018Q4

REPORT INFORMATION
  Report Type: Spontaneous
  Country: US (occurrence: US)
  Receive Date: 20180910
  Receipt Date: 20181001
  Transmission Date: 20190204
  Serious: Yes (Other)
  Sender: FDA-Public Use
  Company Number: US-CELGENEUS-USA-20180809068

PATIENT
  Sex: Male
  Weight: 59.93 kg

DRUGS (1)
  1. REVLIMID [Suspect]
     Active Substance: LENALIDOMIDE
     Indication: PLASMA CELL MYELOMA
     Dosage: 25 MILLIGRAM
     Route: 048
     Dates: start: 201712

REACTIONS (7)
  - Lung infection [Recovered/Resolved]
  - Muscle spasms [Recovered/Resolved]
  - Arthropathy [Not Recovered/Not Resolved]
  - Sinusitis [Recovered/Resolved]
  - Intervertebral disc protrusion [Not Recovered/Not Resolved]
  - Sciatica [Not Recovered/Not Resolved]
  - Blood pressure increased [Not Recovered/Not Resolved]
